FAERS Safety Report 4878070-6 (Version None)
Quarter: 2006Q1

REPORT INFORMATION
  Report Type: 
  Country: None (occurrence: None)
  Receive Date: 20060110
  Receipt Date: 20051229
  Transmission Date: 20060701
  Serious: Yes (Life-Threatening)
  Sender: FDA-Public Use
  Company Number: 220663

PATIENT
  Age: 75 Year
  Weight: 44 kg

DRUGS (3)
  1. GRTPA (ALTEPLASE) PWDR + SOLVENT, INFUSION SOLN [Suspect]
     Indication: CEREBRAL ISCHAEMIA
     Dosage: 10%, INTRAVENOUS
     Route: 042
     Dates: start: 20051222, end: 20051222
  2. NICARDIPINE HCL [Concomitant]
  3. ANTIHYPERTENSIVE MEDICATION NOS (ANTIHYPERTENSIVE NOS) [Concomitant]

REACTIONS (1)
  - CARDIO-RESPIRATORY ARREST [None]
